FAERS Safety Report 15357501 (Version 1)
Quarter: 2018Q3

REPORT INFORMATION
  Report Type: Spontaneous
  Country: JP (occurrence: JP)
  Receive Date: 20180906
  Receipt Date: 20180906
  Transmission Date: 20181010
  Serious: Yes (Other)
  Sender: FDA-Public Use
  Company Number: JP-PFIZER INC-2018350764

PATIENT
  Sex: Female

DRUGS (5)
  1. ETIZOLAM [Concomitant]
     Active Substance: ETIZOLAM
     Dosage: UNK
  2. ATORVASTATIN CALCIUM. [Suspect]
     Active Substance: ATORVASTATIN CALCIUM
     Dosage: 10 MG, DAILY
     Route: 048
  3. CILOSTAZOL. [Suspect]
     Active Substance: CILOSTAZOL
     Dosage: 100 MG, DAILY
     Route: 048
  4. KAMISHOYOSAN [ANGELICA ACUTILOBA ROOT;ATRACTYLODES LANCEA RHIZOME;BUPL [Concomitant]
     Dosage: UNK
  5. CANDESARTAN. [Suspect]
     Active Substance: CANDESARTAN
     Dosage: 8 MG, DAILY
     Route: 048

REACTIONS (4)
  - Sinus arrest [Unknown]
  - Ventricular tachycardia [Unknown]
  - Sinus node dysfunction [Unknown]
  - Syncope [Unknown]

NARRATIVE: CASE EVENT DATE: 2016
